FAERS Safety Report 15223028 (Version 2)
Quarter: 2018Q3

REPORT INFORMATION
  Report Type: Report from Study
  Country: FR (occurrence: FR)
  Receive Date: 20180731
  Receipt Date: 20180812
  Transmission Date: 20181010
  Serious: Yes (Other)
  Sender: FDA-Public Use
  Company Number: FR-TEVA-2018-FR-932210

PATIENT
  Age: 50 Year
  Sex: Male

DRUGS (42)
  1. TEICOPLANIN [Suspect]
     Active Substance: TEICOPLANIN
     Dosage: 1000 MILLIGRAM DAILY;
     Route: 042
     Dates: start: 20170330, end: 20170330
  2. TEICOPLANIN [Suspect]
     Active Substance: TEICOPLANIN
     Dosage: 2000 MILLIGRAM DAILY;
     Route: 042
     Dates: start: 20170331, end: 20170401
  3. TEICOPLANIN [Suspect]
     Active Substance: TEICOPLANIN
     Dosage: 1000 MILLIGRAM DAILY;
     Route: 042
     Dates: start: 20170330, end: 20170330
  4. IMIPENEM [Concomitant]
     Active Substance: IMIPENEM
     Indication: OSTEOMYELITIS
     Route: 042
     Dates: start: 20170410, end: 20170414
  5. INTELENCE [Concomitant]
     Active Substance: ETRAVIRINE
     Indication: HIV INFECTION
     Route: 048
     Dates: start: 20161216
  6. PARACETAMOL [Concomitant]
     Active Substance: ACETAMINOPHEN
     Indication: PAIN
     Route: 048
     Dates: start: 20170310, end: 20170318
  7. TEICOPLANIN [Suspect]
     Active Substance: TEICOPLANIN
     Dosage: 1500 MILLIGRAM DAILY;
     Route: 042
     Dates: start: 20170406, end: 20170406
  8. TEICOPLANIN [Suspect]
     Active Substance: TEICOPLANIN
     Dosage: 2 DOSAGE FORMS DAILY;
     Route: 042
     Dates: start: 20170403, end: 20170403
  9. CEFTRIAXONE. [Concomitant]
     Active Substance: CEFTRIAXONE
     Indication: OSTEOMYELITIS
     Route: 042
     Dates: start: 20170414, end: 20170607
  10. OXYCONTIN [Concomitant]
     Active Substance: OXYCODONE HYDROCHLORIDE
     Indication: PAIN
     Route: 048
     Dates: end: 2017
  11. FOSFOCINE [Concomitant]
     Active Substance: FOSFOMYCIN
     Indication: OSTEOMYELITIS
     Route: 042
     Dates: start: 20170317, end: 20170328
  12. ZECLAR [Concomitant]
     Active Substance: CLARITHROMYCIN
     Indication: SKIN INFECTION
     Route: 048
     Dates: start: 201702
  13. BACTRIM [Concomitant]
     Active Substance: SULFAMETHOXAZOLE\TRIMETHOPRIM
     Indication: OSTEOMYELITIS
     Route: 048
     Dates: start: 20170319, end: 20170406
  14. LAROXYL [Concomitant]
     Active Substance: AMITRIPTYLINE HYDROCHLORIDE
     Indication: PAIN
     Route: 065
     Dates: end: 20170626
  15. MACROGOL [Concomitant]
     Active Substance: POLYETHYLENE GLYCOLS
     Indication: PROPHYLAXIS
     Dosage: 2 SACHETS DAILY DOSE
     Route: 048
     Dates: start: 20170403
  16. CEFOTAXIME [Concomitant]
     Active Substance: CEFOTAXIME SODIUM
     Indication: OSTEOMYELITIS
     Dosage: ROUTE: PAR
     Dates: start: 20170317, end: 20170329
  17. CALCIPARINE [Concomitant]
     Active Substance: HEPARIN CALCIUM
     Indication: PROPHYLAXIS
     Route: 058
     Dates: start: 201705
  18. PREZISTA [Concomitant]
     Active Substance: DARUNAVIR ETHANOLATE
     Indication: HIV INFECTION
     Route: 048
     Dates: start: 2009
  19. NORVIR [Concomitant]
     Active Substance: RITONAVIR
     Indication: HIV INFECTION
     Route: 048
     Dates: start: 2009
  20. ISENTRESS [Concomitant]
     Active Substance: RALTEGRAVIR POTASSIUM
     Indication: HIV INFECTION
     Route: 048
     Dates: start: 20161216
  21. TEICOPLANIN [Suspect]
     Active Substance: TEICOPLANIN
     Indication: ARTHRITIS INFECTIVE
     Dosage: 2 DOSAGE FORMS DAILY;
     Route: 042
     Dates: start: 20170403, end: 20170404
  22. TEICOPLANIN [Suspect]
     Active Substance: TEICOPLANIN
     Dosage: 2000 MILLIGRAM DAILY;
     Route: 042
     Dates: start: 20170331, end: 20170401
  23. TEICOPLANIN [Suspect]
     Active Substance: TEICOPLANIN
     Dosage: 3000 MILLIGRAM DAILY;
     Route: 042
     Dates: start: 20170404, end: 20170405
  24. TEICOPLANIN [Suspect]
     Active Substance: TEICOPLANIN
     Dosage: 2000 MILLIGRAM DAILY;
     Route: 042
     Dates: start: 20170331, end: 20170401
  25. PERFALGAN [Concomitant]
     Active Substance: ACETAMINOPHEN
     Indication: PAIN
     Route: 042
     Dates: start: 20170409, end: 20170414
  26. MOVICOL [Concomitant]
     Active Substance: POLYETHYLENE GLYCOL 3350\POTASSIUM CHLORIDE\SODIUM BICARBONATE\SODIUM CHLORIDE
     Indication: PROPHYLAXIS
     Dosage: 2 SACHET DAILY DOSE
     Route: 048
     Dates: start: 20170311, end: 20170629
  27. LAROSCORBINE [Concomitant]
     Active Substance: ASCORBIC ACID
     Indication: PROPHYLAXIS
     Route: 002
     Dates: start: 20170412, end: 20170620
  28. TEICOPLANIN [Suspect]
     Active Substance: TEICOPLANIN
     Indication: OSTEOMYELITIS
     Dosage: 1000 MILLIGRAM DAILY;
     Route: 042
     Dates: start: 20170402, end: 20170402
  29. TEICOPLANIN [Suspect]
     Active Substance: TEICOPLANIN
     Dosage: 1500 MILLIGRAM DAILY;
     Route: 042
     Dates: start: 20170406, end: 20170418
  30. PRIMPERAN [Concomitant]
     Active Substance: METOCLOPRAMIDE HYDROCHLORIDE
     Indication: PROPHYLAXIS
     Route: 048
     Dates: start: 20170410
  31. TEICOPLANIN [Suspect]
     Active Substance: TEICOPLANIN
     Dosage: 1000 MILLIGRAM DAILY;
     Route: 042
     Dates: start: 20170330, end: 20170330
  32. TEICOPLANIN [Suspect]
     Active Substance: TEICOPLANIN
     Dosage: 1500 MILLIGRAM DAILY;
     Route: 042
     Dates: start: 20170406, end: 20170418
  33. OXYNORMORO [Concomitant]
     Active Substance: OXYCODONE HYDROCHLORIDE
     Indication: PAIN
     Route: 048
     Dates: end: 20170408
  34. LOVENOX [Concomitant]
     Active Substance: ENOXAPARIN SODIUM
     Indication: PROPHYLAXIS
     Route: 058
     Dates: start: 20170310, end: 20170410
  35. ACUPAN [Concomitant]
     Active Substance: NEFOPAM HYDROCHLORIDE
     Indication: PAIN
     Dosage: DAILY DOSE: 1 AMPOULE
     Route: 042
     Dates: start: 20170317, end: 20170327
  36. GENTAMICIN. [Concomitant]
     Active Substance: GENTAMICIN
     Indication: OSTEOMYELITIS
     Route: 042
     Dates: start: 20170317, end: 20170328
  37. LEVOFLOXACIN. [Suspect]
     Active Substance: LEVOFLOXACIN
     Route: 065
  38. TEICOPLANIN [Suspect]
     Active Substance: TEICOPLANIN
     Dosage: 1500 MILLIGRAM DAILY;
     Route: 042
     Dates: start: 20170406, end: 20170406
  39. TEICOPLANIN [Suspect]
     Active Substance: TEICOPLANIN
     Dosage: 3000 MILLIGRAM DAILY;
     Route: 042
     Dates: start: 20170404, end: 20170405
  40. LEDERFOLINE [Concomitant]
     Active Substance: LEUCOVORIN CALCIUM
     Indication: PROPHYLAXIS
     Route: 065
     Dates: end: 2017
  41. VANCOMYCIN [Concomitant]
     Active Substance: VANCOMYCIN
     Indication: OSTEOMYELITIS
     Route: 042
     Dates: start: 20170317, end: 20170330
  42. CEFTRIAXONE. [Concomitant]
     Active Substance: CEFTRIAXONE
     Indication: OSTEOMYELITIS
     Route: 042
     Dates: start: 20170328, end: 20170409

REACTIONS (4)
  - Anaemia [Not Recovered/Not Resolved]
  - Transaminases increased [Recovered/Resolved]
  - Thrombocytopenia [Recovered/Resolved]
  - Nephropathy toxic [Not Recovered/Not Resolved]

NARRATIVE: CASE EVENT DATE: 20170410
